FAERS Safety Report 7443094-1 (Version None)
Quarter: 2011Q2

REPORT INFORMATION
  Report Type: 
  Country: None (occurrence: None)
  Receive Date: 20110420
  Receipt Date: 20110408
  Transmission Date: 20111010
  Serious: Yes (Other)
  Sender: FDA-Public Use
  Company Number: WAES 1104FRA00046

PATIENT
  Age: 28 Year
  Sex: Male

DRUGS (7)
  1. ETHAMBUTOL HYDROCHLORIDE [Concomitant]
  2. ISONIAZID [Concomitant]
  3. LAMIVUDINE [Suspect]
     Indication: HIV INFECTION
     Dosage: 300 MG/DAILY PO
     Route: 048
     Dates: start: 20110324
  4. TENOFOVIR DISOPROXIL FUMARATE [Suspect]
     Indication: HIV INFECTION
     Dosage: 300 MG/DAILY PO
     Route: 048
     Dates: start: 20110324
  5. RIFAMPIN [Concomitant]
  6. ISENTRESS [Suspect]
     Indication: HIV INFECTION
     Dosage: 800 MG/BID PO
     Route: 048
     Dates: start: 20110324
  7. PYRAZINAMIDE [Concomitant]

REACTIONS (3)
  - PYREXIA [None]
  - WEIGHT DECREASED [None]
  - IMMUNE RECONSTITUTION SYNDROME [None]
